FAERS Safety Report 10314979 (Version 1)
Quarter: 2014Q3

REPORT INFORMATION
  Report Type: Spontaneous
  Country: JP (occurrence: JP)
  Receive Date: 20140718
  Receipt Date: 20140718
  Transmission Date: 20150326
  Serious: Yes (Hospitalization)
  Sender: FDA-Public Use
  Company Number: JP-ASTRAZENECA-2014SE52277

PATIENT
  Age: 78 Year
  Sex: Female

DRUGS (3)
  1. MEROPEN [Suspect]
     Active Substance: MEROPENEM
     Route: 042
     Dates: start: 201311
  2. MEROPEN [Suspect]
     Active Substance: MEROPENEM
     Route: 042
     Dates: start: 20140701
  3. ACTEMRA [Concomitant]
     Active Substance: TOCILIZUMAB
     Indication: RHEUMATOID ARTHRITIS
     Dates: start: 1999, end: 20140621

REACTIONS (1)
  - Bone marrow failure [Unknown]
